FAERS Safety Report 17095079 (Version 1)
Quarter: 2019Q4

REPORT INFORMATION
  Report Type: Spontaneous
  Country: US (occurrence: US)
  Receive Date: 20191130
  Receipt Date: 20191130
  Transmission Date: 20200122
  Serious: Yes (Other)
  Sender: FDA-Public Use
  Company Number: US-TEVA-2019-US-1142945

PATIENT
  Sex: Female

DRUGS (1)
  1. CLONAZEPAM TEVA [Suspect]
     Active Substance: CLONAZEPAM
     Dosage: FORM STRENGTH: 1, UNIT NOT PROVIDED
     Route: 065

REACTIONS (9)
  - Gait inability [Unknown]
  - Asthenia [Unknown]
  - Feeling abnormal [Unknown]
  - Dyspnoea [Unknown]
  - Speech disorder [Unknown]
  - Dysphagia [Unknown]
  - Hyperhidrosis [Unknown]
  - Drug ineffective [Unknown]
  - Eating disorder [Unknown]
